FAERS Safety Report 21921037 (Version 3)
Quarter: 2023Q1

REPORT INFORMATION
  Report Type: Spontaneous
  Country: EG (occurrence: EG)
  Receive Date: 20230127
  Receipt Date: 20230315
  Transmission Date: 20230417
  Serious: Yes (Death)
  Sender: FDA-Public Use
  Company Number: EG-002147023-NVSC2023EG017334

PATIENT
  Age: 5 Year
  Sex: Male
  Weight: 22 kg

DRUGS (2)
  1. CEFTRIAXONE [Suspect]
     Active Substance: CEFTRIAXONE
     Indication: Product used for unknown indication
     Dosage: UNK (VIAL, ARCHID PHARMA INDIA, PRODUCTION DATE: DEC 2021)
     Route: 030
  2. CEFTRIAXONE [Suspect]
     Active Substance: CEFTRIAXONE
     Dosage: UNK
     Route: 065

REACTIONS (6)
  - Swelling [Fatal]
  - Fatigue [Fatal]
  - Death [Fatal]
  - Epistaxis [Fatal]
  - Mouth haemorrhage [Fatal]
  - Eye haemorrhage [Fatal]
